FAERS Safety Report 5913817-9 (Version None)
Quarter: 2008Q4

REPORT INFORMATION
  Report Type: 
  Country: None (occurrence: None)
  Receive Date: 20081009
  Receipt Date: 20080923
  Transmission Date: 20090506
  Serious: Yes (Disabling)
  Sender: FDA-Public Use
  Company Number: A0630461B

PATIENT
  Age: 67 Year
  Sex: Female

DRUGS (9)
  1. TOSITUMOMAB [Suspect]
     Indication: NON-HODGKIN'S LYMPHOMA
     Dosage: 450MG SINGLE DOSE
     Route: 042
     Dates: start: 20060526, end: 20060526
  2. IODINE I 131 TOSITUMOMAB [Suspect]
     Indication: NON-HODGKIN'S LYMPHOMA
     Dosage: 5MCI SINGLE DOSE
     Route: 042
     Dates: start: 20060526, end: 20060526
  3. TOSITUMOMAB [Suspect]
     Dosage: 450MG SINGLE DOSE
     Route: 042
     Dates: start: 20060602, end: 20060602
  4. IODINE I 131 TOSITUMOMAB [Suspect]
     Dosage: 53MCI SINGLE DOSE
     Route: 042
     Dates: start: 20060602, end: 20060602
  5. FLUDARABINE PHOSPHATE [Suspect]
     Indication: NON-HODGKIN'S LYMPHOMA
     Route: 042
     Dates: start: 20030501, end: 20040801
  6. CYCLOPHOSPHAMIDE [Suspect]
     Indication: NON-HODGKIN'S LYMPHOMA
     Route: 042
     Dates: start: 20050201
  7. CHLORAMBUCIL [Suspect]
     Indication: NON-HODGKIN'S LYMPHOMA
     Dates: start: 20050201
  8. VINCRISTINE [Suspect]
     Indication: NON-HODGKIN'S LYMPHOMA
     Dates: start: 20060101, end: 20060301
  9. PREDNISOLONE [Suspect]
     Indication: NON-HODGKIN'S LYMPHOMA
     Dates: start: 20060101, end: 20060301

REACTIONS (1)
  - MYELODYSPLASTIC SYNDROME [None]
